FAERS Safety Report 10446930 (Version 2)
Quarter: 2014Q3

REPORT INFORMATION
  Report Type: Spontaneous
  Country: US (occurrence: None)
  Receive Date: 20140909
  Receipt Date: 20140925
  Transmission Date: 20150326
  Serious: Yes (Hospitalization)
  Sender: FDA-Public Use
  Company Number: 2014-US-011139

PATIENT
  Age: 49 Year
  Sex: Male
  Weight: 68 kg

DRUGS (1)
  1. XYREM [Suspect]
     Active Substance: SODIUM OXYBATE
     Indication: INSOMNIA
     Route: 048
     Dates: start: 200610, end: 200610

REACTIONS (7)
  - Off label use [None]
  - Head injury [None]
  - Fall [None]
  - Patella fracture [None]
  - Wrist fracture [None]
  - Joint dislocation [None]
  - Foot fracture [None]

NARRATIVE: CASE EVENT DATE: 201405
